FAERS Safety Report 18724478 (Version 1)
Quarter: 2021Q1

REPORT INFORMATION
  Report Type: Spontaneous
  Country: NL (occurrence: NL)
  Receive Date: 20210111
  Receipt Date: 20210111
  Transmission Date: 20210419
  Serious: Yes (Other)
  Sender: FDA-Public Use
  Company Number: NL-TEVA-2021-NL-1866720

PATIENT
  Age: 92 Year
  Sex: Female
  Weight: 45 kg

DRUGS (2)
  1. MACROGOL/ZOUTEN PDR V DRANK (MOVIC/MOLAX/LAXT/GEN) / MOVICOLON POEDER [Concomitant]
     Dosage: POWDER FOR DRINK, 1 DOSAGE FORMS,THERAPY START DATE AND END DATE: ASKED BUT UNKNOWN
  2. DEXAMETHASON TABLET 0,5MG / BRAND NAME NOT SPECIFIED [Suspect]
     Active Substance: DEXAMETHASONE
     Indication: LUNG NEOPLASM MALIGNANT
     Dosage: 2 MILLIGRAM DAILY; 1 X PER DAY 4 TABLET, 0.5 MG,THERAPY  END DATE: ASKED BUT UNKNOWN
     Route: 065
     Dates: start: 20201111

REACTIONS (2)
  - Hallucination, auditory [Not Recovered/Not Resolved]
  - Hallucination, visual [Not Recovered/Not Resolved]

NARRATIVE: CASE EVENT DATE: 20201207
